APPROVED DRUG PRODUCT: CABERGOLINE
Active Ingredient: CABERGOLINE
Strength: 0.5MG
Dosage Form/Route: TABLET;ORAL
Application: A202947 | Product #001
Applicant: PHARMOBEDIENT CONSULTING LLC
Approved: Dec 2, 2013 | RLD: No | RS: No | Type: DISCN